FAERS Safety Report 7509800-2 (Version None)
Quarter: 2011Q2

REPORT INFORMATION
  Report Type: 
  Country: None (occurrence: None)
  Receive Date: 20110527
  Receipt Date: 20110513
  Transmission Date: 20111010
  Serious: Yes (Hospitalization)
  Sender: FDA-Public Use
  Company Number: A0793409A

PATIENT
  Age: 54 Year
  Sex: Female
  Weight: 95.5 kg

DRUGS (31)
  1. LEVOXYL [Concomitant]
  2. KLOR-CON [Concomitant]
  3. DIAMOX [Concomitant]
  4. LIPITOR [Concomitant]
  5. NITROGLYCERIN [Concomitant]
  6. TOPROL-XL [Concomitant]
  7. HUMULIN R [Concomitant]
  8. AMITRIPTYLINE HCL [Concomitant]
  9. GLUCOPHAGE [Concomitant]
  10. PREVACID [Concomitant]
  11. TRILEPTAL [Concomitant]
  12. ELAVIL [Concomitant]
  13. COUMADIN [Concomitant]
  14. CARDIZEM [Concomitant]
  15. ASPIRIN [Concomitant]
  16. AVANDIA [Suspect]
     Route: 048
     Dates: start: 19960801, end: 20041101
  17. ENALAPRIL MALEATE [Concomitant]
  18. HUMALOG [Concomitant]
  19. GEMFIBROZIL [Concomitant]
  20. REGLAN [Concomitant]
  21. NITROGLYCERIN [Concomitant]
  22. POTASSIUM CHLORIDE [Concomitant]
  23. PREMPRO [Concomitant]
  24. LASIX [Concomitant]
  25. EVISTA [Concomitant]
  26. AGGRENOX [Concomitant]
  27. CLONAZEPAM [Concomitant]
  28. SPIRONOLACTONE [Concomitant]
  29. VASOTEC [Concomitant]
  30. ZOLOFT [Concomitant]
  31. TESSALON [Concomitant]

REACTIONS (9)
  - RENAL FAILURE ACUTE [None]
  - MACULAR OEDEMA [None]
  - CEREBROVASCULAR ACCIDENT [None]
  - RETINOPATHY [None]
  - TIBIA FRACTURE [None]
  - CARDIAC FAILURE CONGESTIVE [None]
  - TRANSIENT ISCHAEMIC ATTACK [None]
  - MYOCARDIAL INFARCTION [None]
  - RENAL FAILURE CHRONIC [None]
